FAERS Safety Report 7972929-9 (Version None)
Quarter: 2011Q4

REPORT INFORMATION
  Report Type: 
  Country: None (occurrence: None)
  Receive Date: 20111122
  Receipt Date: 20110628
  Transmission Date: 20120403
  Serious: No
  Sender: FDA-Public Use
  Company Number: PHHY2011US58161

PATIENT
  Sex: Female

DRUGS (4)
  1. TRAZODONE HCL [Concomitant]
  2. OXYBUTYNIN [Concomitant]
  3. GILENYA [Suspect]
     Indication: MULTIPLE SCLEROSIS
     Dosage: 0.5 MG, DAILY, ORAL
     Route: 048
  4. TYLENLOL (PARACETAMOL) [Concomitant]

REACTIONS (3)
  - HEADACHE [None]
  - CHEST PAIN [None]
  - DYSPNOEA [None]
